FAERS Safety Report 4352534-6 (Version None)
Quarter: 2004Q2

REPORT INFORMATION
  Report Type: 
  Country: None (occurrence: None)
  Receive Date: 20040503
  Receipt Date: 20040503
  Transmission Date: 20050107
  Serious: Yes (Hospitalization, Other)
  Sender: FDA-Public Use
  Company Number: None

PATIENT
  Age: 38 Year
  Sex: Male
  Weight: 108.9 kg

DRUGS (10)
  1. TACROLIMUS [Suspect]
     Indication: LUPUS NEPHRITIS
     Dosage: 5MG PO BID
     Route: 048
     Dates: start: 20040303
  2. PLAQUENIL [Concomitant]
  3. CELLCEPT [Concomitant]
  4. LISINOPRIL [Concomitant]
  5. PREDNISONE [Concomitant]
  6. CLONIDINE HCL [Concomitant]
  7. LASIX [Concomitant]
  8. OMEPRAZOLE [Concomitant]
  9. LABETALOL HCL [Concomitant]
  10. IRBESARTAN [Concomitant]

REACTIONS (7)
  - BACK PAIN [None]
  - CHILLS [None]
  - NAUSEA [None]
  - RENAL FAILURE [None]
  - THROMBOCYTOPENIA [None]
  - THROMBOTIC THROMBOCYTOPENIC PURPURA [None]
  - VOMITING [None]
